FAERS Safety Report 6535689-4 (Version None)
Quarter: 2010Q1

REPORT INFORMATION
  Report Type: 
  Country: None (occurrence: None)
  Receive Date: 20100111
  Receipt Date: 20100111
  Transmission Date: 20100710
  Serious: No
  Sender: FDA-Public Use
  Company Number: None

PATIENT
  Age: 45 Year
  Sex: Male
  Weight: 99.5 kg

DRUGS (6)
  1. CREST WHITENING RINSE IN WHITE BOTTLE ^TRIPLE-ACTION^ PROCTER + GAMAMB [Suspect]
     Indication: DENTAL CARE
     Dosage: 1/2 OZ 1X PER DAY ORAL
     Route: 048
     Dates: start: 20091223
  2. CREST WHITENING RINSE IN WHITE BOTTLE ^TRIPLE-ACTION^ PROCTER + GAMAMB [Suspect]
     Indication: DENTAL DISORDER PROPHYLAXIS
     Dosage: 1/2 OZ 1X PER DAY ORAL
     Route: 048
     Dates: start: 20091223
  3. CREST WHITENING RINSE IN WHITE BOTTLE ^TRIPLE-ACTION^ PROCTER + GAMAMB [Suspect]
     Indication: DENTAL CARE
     Dosage: 1/2 OZ 1X PER DAY ORAL
     Route: 048
     Dates: start: 20091224
  4. CREST WHITENING RINSE IN WHITE BOTTLE ^TRIPLE-ACTION^ PROCTER + GAMAMB [Suspect]
     Indication: DENTAL DISORDER PROPHYLAXIS
     Dosage: 1/2 OZ 1X PER DAY ORAL
     Route: 048
     Dates: start: 20091224
  5. CREST WHITENING RINSE IN WHITE BOTTLE ^TRIPLE-ACTION^ PROCTER + GAMAMB [Suspect]
     Indication: DENTAL CARE
     Dosage: 1/2 OZ 1X PER DAY ORAL
     Route: 048
     Dates: start: 20091225
  6. CREST WHITENING RINSE IN WHITE BOTTLE ^TRIPLE-ACTION^ PROCTER + GAMAMB [Suspect]
     Indication: DENTAL DISORDER PROPHYLAXIS
     Dosage: 1/2 OZ 1X PER DAY ORAL
     Route: 048
     Dates: start: 20091225

REACTIONS (4)
  - PAIN [None]
  - PRODUCT QUALITY ISSUE [None]
  - PRODUCT TASTE ABNORMAL [None]
  - STOMATITIS [None]
